FAERS Safety Report 22221664 (Version 2)
Quarter: 2023Q2

REPORT INFORMATION
  Report Type: Other
  Country: US (occurrence: None)
  Receive Date: 20230418
  Receipt Date: 20230425
  Transmission Date: 20230721
  Serious: Yes (Death, Other)
  Sender: FDA-Public Use
  Company Number: US-ROCHE-3330341

PATIENT
  Age: 62 Year
  Sex: Female
  Weight: 104.42 kg

DRUGS (3)
  1. OCREVUS [Suspect]
     Active Substance: OCRELIZUMAB
     Indication: Relapsing-remitting multiple sclerosis
     Dosage: 300MG IV EVERY 2 WEEKS, 600MG IV Q 6 MONTHS / 24 WEEKS
     Route: 042
     Dates: start: 20200807, end: 20221115
  2. TECFIDERA [Concomitant]
     Active Substance: DIMETHYL FUMARATE
  3. TYSABRI [Concomitant]
     Active Substance: NATALIZUMAB

REACTIONS (5)
  - Death [Fatal]
  - Pneumonia [Recovered/Resolved]
  - Diverticulitis [Recovered/Resolved]
  - Urinary tract infection [Recovered/Resolved]
  - Influenza [Recovered/Resolved]
